FAERS Safety Report 10920656 (Version 1)
Quarter: 2015Q1

REPORT INFORMATION
  Report Type: Spontaneous
  Country: US (occurrence: None)
  Receive Date: 20150312
  Receipt Date: 20150312
  Transmission Date: 20150721
  Serious: No
  Sender: FDA-Public Use
  Company Number: None

PATIENT
  Age: 27 Year
  Sex: Female

DRUGS (2)
  1. MAKENA [Suspect]
     Active Substance: HYDROXYPROGESTERONE CAPROATE
     Indication: PROPHYLAXIS
     Route: 030
     Dates: start: 20140303, end: 20150224
  2. MAKENA [Suspect]
     Active Substance: HYDROXYPROGESTERONE CAPROATE
     Indication: PREMATURE DELIVERY
     Route: 030
     Dates: start: 20140303, end: 20150224

REACTIONS (6)
  - Rash [None]
  - Contusion [None]
  - Cold sweat [None]
  - Presyncope [None]
  - Migraine [None]
  - Wrong technique in drug usage process [None]

NARRATIVE: CASE EVENT DATE: 20150303
